FAERS Safety Report 5488012-0 (Version None)
Quarter: 2007Q4

REPORT INFORMATION
  Report Type: 
  Country: None (occurrence: None)
  Receive Date: 20071017
  Receipt Date: 20071002
  Transmission Date: 20080405
  Serious: Yes (Hospitalization, Other)
  Sender: FDA-Public Use
  Company Number: JP-ELI_LILLY_AND_COMPANY-JP200709000002

PATIENT
  Sex: Male
  Weight: 46.5 kg

DRUGS (6)
  1. GEMCITABINE HCL [Suspect]
     Indication: PANCREATIC CARCINOMA NON-RESECTABLE
     Dosage: 1000 MG/M2, OTHER
     Route: 042
     Dates: start: 20070712
  2. TARCEVA [Suspect]
     Indication: PANCREATIC CARCINOMA NON-RESECTABLE
     Dosage: 100 MG, DAILY (1/D)
     Route: 048
     Dates: start: 20070712, end: 20070928
  3. FOIPAN [Concomitant]
     Dosage: 2 D/F, 3/D
     Route: 048
     Dates: start: 20070711
  4. PROTECADIN /JPN/ [Concomitant]
     Indication: PROPHYLAXIS
     Dosage: 1 D/F, 2/D
     Route: 048
     Dates: start: 20070711
  5. MAGNESIUM OXIDE [Concomitant]
     Indication: CONSTIPATION
     Dosage: UNK, AS NEEDED
     Route: 048
     Dates: start: 20070830
  6. GASMOTIN [Concomitant]
     Dosage: UNK, 3/D
     Dates: start: 20070830

REACTIONS (3)
  - MEDIASTINITIS [None]
  - PANCREATITIS [None]
  - PNEUMATOSIS [None]
